FAERS Safety Report 25183285 (Version 1)
Quarter: 2025Q2

REPORT INFORMATION
  Report Type: Spontaneous
  Country: US (occurrence: None)
  Receive Date: 20250409
  Receipt Date: 20250409
  Transmission Date: 20250717
  Serious: Yes (Death, Life-Threatening, Hospitalization, Other)
  Sender: FDA-CTU
  Company Number: None

PATIENT
  Age: 73 Year
  Sex: Male
  Weight: 102.06 kg

DRUGS (1)
  1. BCG LIVE [Suspect]
     Active Substance: BCG LIVE
     Indication: Bladder cancer
     Dates: start: 20190729, end: 20191230

REACTIONS (11)
  - Secretion discharge [None]
  - Bacillus Calmette-Guerin infection [None]
  - Hip arthroplasty [None]
  - Surgical failure [None]
  - General physical health deterioration [None]
  - Drug ineffective [None]
  - Atrial fibrillation [None]
  - Pneumonia [None]
  - Tracheostomy [None]
  - Bladder cancer recurrent [None]
  - Multi-organ disorder [None]

NARRATIVE: CASE EVENT DATE: 20220629
